FAERS Safety Report 13029603 (Version 3)
Quarter: 2017Q2

REPORT INFORMATION
  Report Type: Spontaneous
  Country: JP (occurrence: JP)
  Receive Date: 20161215
  Receipt Date: 20170503
  Transmission Date: 20170830
  Serious: Yes (Death, Life-Threatening, Hospitalization, Other)
  Sender: FDA-Public Use
  Company Number: JP-TEVA-720426ACC

PATIENT
  Age: 56 Year
  Sex: Male

DRUGS (17)
  1. CEFEPIME HYDROCHLORIDE. [Suspect]
     Active Substance: CEFEPIME HYDROCHLORIDE
     Indication: FEBRILE NEUTROPENIA
     Dosage: 1 G X 4
     Route: 041
     Dates: start: 20161012, end: 20161106
  2. DAPTOMYCIN. [Suspect]
     Active Substance: DAPTOMYCIN
     Indication: FEBRILE NEUTROPENIA
     Dosage: 350 MILLIGRAM DAILY;
     Route: 041
     Dates: start: 20161121, end: 20161125
  3. ACICLOVIR [Concomitant]
     Active Substance: ACYCLOVIR
     Indication: INFECTION PROPHYLAXIS
     Route: 048
     Dates: start: 20161018, end: 20161214
  4. BENDAMUSTINE HYDROCHLORIDE. [Suspect]
     Active Substance: BENDAMUSTINE HYDROCHLORIDE
     Indication: B-CELL LYMPHOMA
     Dosage: 160 MG/M2 DAILY;
     Route: 041
     Dates: start: 20161017, end: 20161018
  5. SULFAMETHOXAZOLE AND TRIMETHOPRIM [Suspect]
     Active Substance: SULFAMETHOXAZOLE\TRIMETHOPRIM
     Indication: PNEUMOCYSTIS JIROVECII PNEUMONIA
     Dosage: AS TRIMETHOPRIM
     Route: 048
     Dates: start: 20161020, end: 20161102
  6. BENDAMUSTINE HYDROCHLORIDE. [Suspect]
     Active Substance: BENDAMUSTINE HYDROCHLORIDE
     Dosage: 160 MG/M2 DAILY;
     Route: 041
     Dates: start: 20161117, end: 20161118
  7. PALONOSETRON HYDROCHLORIDE. [Suspect]
     Active Substance: PALONOSETRON HYDROCHLORIDE
     Dosage: .75 MILLIGRAM DAILY;
     Route: 041
     Dates: start: 20161117, end: 20161117
  8. ACETAMINOPHEN. [Suspect]
     Active Substance: ACETAMINOPHEN
     Indication: MALAISE
     Dosage: 500 MILLIGRAM DAILY;
     Route: 048
     Dates: start: 20161122, end: 20161203
  9. DOMPERIDONE [Concomitant]
     Active Substance: DOMPERIDONE
     Indication: NAUSEA
     Route: 048
     Dates: start: 20161021, end: 20161022
  10. RITUXIMAB [Suspect]
     Active Substance: RITUXIMAB
     Indication: B-CELL LYMPHOMA
     Dosage: 685 MILLIGRAM DAILY;
     Route: 041
     Dates: start: 20161024, end: 20161115
  11. ITRACONAZOLE. [Concomitant]
     Active Substance: ITRACONAZOLE
     Indication: INFECTION PROPHYLAXIS
     Route: 048
     Dates: start: 20161021, end: 20161125
  12. PALONOSETRON HYDROCHLORIDE. [Suspect]
     Active Substance: PALONOSETRON HYDROCHLORIDE
     Indication: PROPHYLAXIS OF NAUSEA AND VOMITING
     Dosage: .75 MILLIGRAM DAILY;
     Route: 041
     Dates: start: 20161017, end: 20161017
  13. APREPITANT. [Suspect]
     Active Substance: APREPITANT
     Indication: PROPHYLAXIS OF NAUSEA AND VOMITING
     Dosage: 125MG - 80MG
     Route: 048
     Dates: start: 20161017, end: 20161019
  14. LENOGRASTIM [Suspect]
     Active Substance: LENOGRASTIM
     Indication: NEUTROPENIA
     Route: 058
     Dates: start: 20161020, end: 20161103
  15. APREPITANT. [Suspect]
     Active Substance: APREPITANT
     Dosage: 125MG - 80MG
     Route: 048
     Dates: start: 20161117, end: 20161119
  16. LENOGRASTIM [Suspect]
     Active Substance: LENOGRASTIM
     Dosage: 100 MICROGRAM DAILY;
     Route: 058
     Dates: start: 20161121, end: 20161128
  17. PIPERACILLIN AND TAZOBACTAM [Suspect]
     Active Substance: PIPERACILLIN SODIUM\TAZOBACTAM SODIUM
     Indication: FEBRILE NEUTROPENIA
     Dosage: 4.5 G X 4
     Route: 041
     Dates: start: 20161114, end: 20161128

REACTIONS (4)
  - Interstitial lung disease [Recovering/Resolving]
  - Erythema [Recovered/Resolved]
  - Stevens-Johnson syndrome [Fatal]
  - Toxic epidermal necrolysis [Fatal]

NARRATIVE: CASE EVENT DATE: 20161202
